FAERS Safety Report 9508207 (Version 1)
Quarter: 2013Q3

REPORT INFORMATION
  Report Type: Spontaneous
  Country: US (occurrence: US)
  Receive Date: 20130909
  Receipt Date: 20130909
  Transmission Date: 20140515
  Serious: Yes (Other)
  Sender: FDA-Public Use
  Company Number: US-PFIZER INC-2013257827

PATIENT
  Sex: Male
  Weight: 90.7 kg

DRUGS (3)
  1. TIKOSYN [Suspect]
     Indication: ATRIAL FIBRILLATION
     Dosage: 500 UG, 2X/DAY
     Route: 048
     Dates: start: 2009
  2. NEXIUM [Concomitant]
     Indication: BARRETT^S OESOPHAGUS
     Dosage: UNK
  3. CARDIZEM [Concomitant]
     Indication: CARDIAC DISORDER
     Dosage: 120 MG, 1X/DAY

REACTIONS (1)
  - Cardiac disorder [Unknown]
